FAERS Safety Report 5286554-4 (Version None)
Quarter: 2007Q2

REPORT INFORMATION
  Report Type: 
  Country: None (occurrence: None)
  Receive Date: 20070404
  Receipt Date: 20070329
  Transmission Date: 20071010
  Serious: Yes (Hospitalization, Other)
  Sender: FDA-Public Use
  Company Number: US-ELI_LILLY_AND_COMPANY-US200703005852

PATIENT
  Age: 70 Year
  Sex: Male
  Weight: 95.691 kg

DRUGS (3)
  1. ALIMTA [Suspect]
     Indication: NON-SMALL CELL LUNG CANCER METASTATIC
     Dosage: 1000 MG, UNK
     Dates: start: 20070316, end: 20070301
  2. VITAMIN B-12 [Concomitant]
     Indication: VITAMIN SUPPLEMENTATION
     Dosage: 1 MG, DAILY (1/D)
     Route: 048
     Dates: start: 20070306
  3. FOLIC ACID [Concomitant]
     Indication: VITAMIN SUPPLEMENTATION
     Dosage: 0.8 MG, DAILY (1/D)
     Dates: start: 20070306

REACTIONS (4)
  - AZOTAEMIA [None]
  - DIARRHOEA [None]
  - NEUTROPENIA [None]
  - THROMBOCYTOPENIA [None]
